FAERS Safety Report 4679212-8 (Version None)
Quarter: 2005Q2

REPORT INFORMATION
  Report Type: 
  Country: None (occurrence: None)
  Receive Date: 20050311
  Receipt Date: 20050311
  Transmission Date: 20051028
  Serious: Yes (Other)
  Sender: FDA-Public Use
  Company Number: None

PATIENT
  Sex: Male
  Weight: 56.6996 kg

DRUGS (1)
  1. CARDIZEM CD [Suspect]
     Dosage: 120MG  ONE PO DAILY
     Route: 048

REACTIONS (2)
  - ASTHENIA [None]
  - DIZZINESS [None]
